FAERS Safety Report 5226796-7 (Version None)
Quarter: 2007Q1

REPORT INFORMATION
  Report Type: 
  Country: None (occurrence: None)
  Receive Date: 20070130
  Receipt Date: 20070122
  Transmission Date: 20070707
  Serious: Yes (Hospitalization)
  Sender: FDA-Public Use
  Company Number: L07-UKI-00340-02

PATIENT
  Age: 19 Year
  Sex: Female

DRUGS (1)
  1. PROPRANOLOL [Suspect]
     Indication: MIGRAINE PROPHYLAXIS

REACTIONS (13)
  - ACUTE PULMONARY OEDEMA [None]
  - ANAESTHETIC COMPLICATION [None]
  - CHOLECYSTITIS ACUTE [None]
  - CHOLELITHIASIS [None]
  - CIRCULATORY COLLAPSE [None]
  - CONDITION AGGRAVATED [None]
  - DRUG INTOLERANCE [None]
  - HEADACHE [None]
  - HYPERHIDROSIS [None]
  - PARAGANGLION NEOPLASM [None]
  - PHAEOCHROMOCYTOMA [None]
  - SINUS TACHYCARDIA [None]
  - TUMOUR HAEMORRHAGE [None]
